FAERS Safety Report 6991890-7 (Version None)
Quarter: 2010Q3

REPORT INFORMATION
  Report Type: 
  Country: None (occurrence: None)
  Receive Date: 20100917
  Receipt Date: 20100907
  Transmission Date: 20110219
  Serious: Yes (Hospitalization)
  Sender: FDA-Public Use
  Company Number: FR-PFIZER INC-2010112623

PATIENT
  Age: 15 Year
  Sex: Female
  Weight: 65 kg

DRUGS (3)
  1. SOMATROPIN [Suspect]
     Indication: HYPOPITUITARISM
     Dosage: UNK
     Dates: start: 19960617, end: 20090302
  2. LEVOTHYROXINE SODIUM [Concomitant]
     Indication: HYPOPITUITARISM
     Dosage: 100 UG, 1X/DAY
     Route: 048
  3. ROCEPHIN [Concomitant]
     Dosage: 1.5 G, 1X/DAY

REACTIONS (3)
  - DYSPHAGIA [None]
  - PHARYNGITIS STREPTOCOCCAL [None]
  - VOMITING [None]
